FAERS Safety Report 23821550 (Version 2)
Quarter: 2024Q3

REPORT INFORMATION
  Report Type: Report from Study
  Country: US (occurrence: US)
  Receive Date: 20240506
  Receipt Date: 20240704
  Transmission Date: 20241017
  Serious: Yes (Life-Threatening)
  Sender: SANOFI AVENTIS
  Company Number: US-SA-SAC20231018001531

PATIENT
  Age: 55 Year
  Sex: Male
  Weight: 85.6 kg

DRUGS (34)
  1. ISATUXIMAB [Suspect]
     Active Substance: ISATUXIMAB
     Indication: Plasma cell myeloma refractory
     Dosage: 900 MG, QW
     Route: 041
     Dates: start: 20210225, end: 20210323
  2. ISATUXIMAB [Suspect]
     Active Substance: ISATUXIMAB
     Dosage: 900 MG, QW
     Route: 041
     Dates: start: 20210324, end: 20210406
  3. ISATUXIMAB [Suspect]
     Active Substance: ISATUXIMAB
     Dosage: 900 MG, BIW
     Route: 041
     Dates: start: 20211028, end: 20211122
  4. ISATUXIMAB [Suspect]
     Active Substance: ISATUXIMAB
     Dosage: 900 MG, BIW
     Route: 041
     Dates: start: 20211123, end: 20211222
  5. POMALIDOMIDE [Suspect]
     Active Substance: POMALIDOMIDE
     Indication: Plasma cell myeloma refractory
     Dosage: 4 MG, QD
     Dates: start: 20210225, end: 20210323
  6. POMALIDOMIDE [Suspect]
     Active Substance: POMALIDOMIDE
     Dosage: 4 MG, QD
     Dates: start: 20210324, end: 20210406
  7. POMALIDOMIDE [Suspect]
     Active Substance: POMALIDOMIDE
     Dosage: 3 MG, QD
     Dates: start: 20211028, end: 20211122
  8. POMALIDOMIDE [Suspect]
     Active Substance: POMALIDOMIDE
     Dosage: 3 MG, QD
     Dates: start: 20211123, end: 20211222
  9. DEXAMETHASONE [Suspect]
     Active Substance: DEXAMETHASONE
     Indication: Plasma cell myeloma refractory
     Dosage: 40 MG, QW
     Dates: start: 20210225, end: 20210323
  10. DEXAMETHASONE [Suspect]
     Active Substance: DEXAMETHASONE
     Dosage: 40 MG, BIW
     Dates: start: 20211028, end: 20211122
  11. DEXAMETHASONE [Suspect]
     Active Substance: DEXAMETHASONE
     Dosage: 40 MG, BIW
     Dates: start: 20211123, end: 20211222
  12. EXFORGE [Concomitant]
     Active Substance: AMLODIPINE BESYLATE\VALSARTAN
     Indication: Hypertension
     Dosage: UNK
     Dates: start: 20210209
  13. ELIQUIS [Concomitant]
     Active Substance: APIXABAN
     Indication: Prophylaxis
     Dosage: UNK
     Dates: start: 20210209
  14. ASPIRIN [Concomitant]
     Active Substance: ASPIRIN
     Indication: Prophylaxis
     Dosage: UNK
     Dates: start: 20210209
  15. LIPITOR [Concomitant]
     Active Substance: ATORVASTATIN CALCIUM
     Indication: Hyperlipidaemia
     Dosage: UNK
     Dates: start: 20190128
  16. CETIRIZINE HYDROCHLORIDE [Concomitant]
     Active Substance: CETIRIZINE HYDROCHLORIDE
     Indication: Prophylaxis
     Dosage: UNK
     Dates: start: 20210209
  17. CHOLECALCIFEROL [Concomitant]
     Active Substance: CHOLECALCIFEROL
     Indication: Vitamin D deficiency
     Dosage: UNK
     Dates: start: 20210209
  18. MAGNESIUM OXIDE [Concomitant]
     Active Substance: MAGNESIUM OXIDE
     Indication: Gastrooesophageal reflux prophylaxis
     Dosage: UNK
     Dates: start: 20210209
  19. PANTOPRAZOLE SODIUM [Concomitant]
     Active Substance: PANTOPRAZOLE SODIUM
     Indication: Gastrooesophageal reflux prophylaxis
     Dosage: UNK
     Dates: start: 20210211
  20. VALTREX [Concomitant]
     Active Substance: VALACYCLOVIR HYDROCHLORIDE
     Indication: Herpes zoster
     Dosage: UNK
     Dates: start: 20210211
  21. TAMSULOSIN HYDROCHLORIDE [Concomitant]
     Active Substance: TAMSULOSIN HYDROCHLORIDE
     Indication: Benign prostatic hyperplasia
     Dosage: UNK
     Dates: start: 20210209
  22. JANUMET [Concomitant]
     Active Substance: METFORMIN HYDROCHLORIDE\SITAGLIPTIN PHOSPHATE
     Indication: Type 2 diabetes mellitus
     Dosage: UNK
     Dates: start: 20210301
  23. PROCHLORPERAZINE EDISYLATE [Concomitant]
     Active Substance: PROCHLORPERAZINE EDISYLATE
     Indication: Gastrooesophageal reflux disease
     Dosage: UNK
     Dates: start: 20210209
  24. MIRALAX [Concomitant]
     Active Substance: POLYETHYLENE GLYCOL 3350
     Indication: Constipation prophylaxis
     Dosage: UNK
     Dates: start: 20210209
  25. IMODIUM [Concomitant]
     Active Substance: LOPERAMIDE HYDROCHLORIDE
     Indication: Diarrhoea
     Dosage: UNK
     Dates: start: 20210209
  26. GLUCOTROL XL [Concomitant]
     Active Substance: GLIPIZIDE
     Indication: Type 2 diabetes mellitus
     Dosage: UNK
     Dates: start: 20210226
  27. BARACLUDE [Concomitant]
     Active Substance: ENTECAVIR
     Indication: Hepatitis B antibody
     Dosage: UNK
     Dates: start: 20210209
  28. COLACE [Concomitant]
     Active Substance: DOCUSATE SODIUM
     Indication: Inguinal hernia
     Dosage: UNK
     Dates: start: 20210209
  29. TEMOVATE [Concomitant]
     Active Substance: CLOBETASOL PROPIONATE
     Indication: Pruritus
     Dosage: UNK
     Dates: start: 20190117
  30. TYLENOL [Concomitant]
     Active Substance: ACETAMINOPHEN
     Dosage: 650 MG, QCY
     Dates: start: 20210226
  31. PEPCID [Concomitant]
     Active Substance: FAMOTIDINE
     Dosage: 20 MG, QCY
     Dates: start: 20210226
  32. BENADRYL [Concomitant]
     Active Substance: DIPHENHYDRAMINE HYDROCHLORIDE
     Dosage: 50 MG/ML(25 MG), QCY
     Dates: start: 20210225
  33. DECADRON [Concomitant]
     Active Substance: DEXAMETHASONE
     Dosage: 40 MG, QCY
     Dates: start: 20210226
  34. ZARXIO [Concomitant]
     Active Substance: FILGRASTIM-SNDZ
     Indication: Prophylaxis
     Dosage: UNK
     Dates: start: 20210930, end: 20210930

REACTIONS (2)
  - Neutropenia [Recovered/Resolved]
  - Neutropenia [Recovered/Resolved]

NARRATIVE: CASE EVENT DATE: 20210407
